FAERS Safety Report 7442784-4 (Version None)
Quarter: 2011Q2

REPORT INFORMATION
  Report Type: 
  Country: None (occurrence: None)
  Receive Date: 20110428
  Receipt Date: 20110419
  Transmission Date: 20111010
  Serious: Yes (Hospitalization, Other)
  Sender: FDA-Public Use
  Company Number: DE-JNJFOC-20110400482

PATIENT
  Age: 54 Year
  Sex: Male
  Weight: 59 kg

DRUGS (4)
  1. ACTONEL [Concomitant]
     Indication: OSTEOPOROSIS
  2. CELEBREX [Concomitant]
     Indication: ANKYLOSING SPONDYLITIS
  3. SIMPONI [Suspect]
     Indication: ANKYLOSING SPONDYLITIS
     Route: 058
  4. SIMVASTATIN [Concomitant]
     Indication: LIPIDS ABNORMAL

REACTIONS (2)
  - PNEUMONIA [None]
  - PYREXIA [None]
